FAERS Safety Report 8369653-X (Version None)
Quarter: 2012Q1

REPORT INFORMATION
  Report Type: 
  Country: None (occurrence: None)
  Receive Date: 20120323
  Receipt Date: 20110909
  Transmission Date: 20120608
  Serious: Yes (Hospitalization, Other)
  Sender: FDA-Public Use
  Company Number: 163-21880-11012552

PATIENT
  Age: 90 Year
  Sex: Male
  Weight: 61.69 kg

DRUGS (5)
  1. DEXAMETHASONE [Concomitant]
  2. LISINOPRIL [Concomitant]
  3. NORVASC [Concomitant]
  4. REVLIMID [Suspect]
     Indication: MULTIPLE MYELOMA
     Dosage: 10 MG, DAILY X 21 DAYS, PO, 5 MG, QOD, PO
     Route: 048
     Dates: start: 20110401
  5. REVLIMID [Suspect]
     Indication: MULTIPLE MYELOMA
     Dosage: 10 MG, DAILY X 21 DAYS, PO, 5 MG, QOD, PO
     Route: 048
     Dates: start: 20101101, end: 20110101

REACTIONS (2)
  - MYOCARDIAL INFARCTION [None]
  - PANCYTOPENIA [None]
